FAERS Safety Report 25387850 (Version 2)
Quarter: 2025Q3

REPORT INFORMATION
  Report Type: Spontaneous
  Country: US (occurrence: US)
  Receive Date: 20250603
  Receipt Date: 20250814
  Transmission Date: 20251021
  Serious: No
  Sender: SANOFI AVENTIS
  Company Number: US-SA-2025SA156316

PATIENT
  Age: 62 Year
  Sex: Male

DRUGS (2)
  1. DUPIXENT [Suspect]
     Active Substance: DUPILUMAB
     Indication: Asthma
     Route: 058
     Dates: start: 20240122, end: 20240122
  2. DUPIXENT [Suspect]
     Active Substance: DUPILUMAB
     Dosage: 300 MG, QOW
     Route: 058
     Dates: start: 202402, end: 202506

REACTIONS (5)
  - Asthma [Unknown]
  - Sneezing [Recovered/Resolved]
  - Dyspnoea [Recovered/Resolved]
  - Injection site pain [Unknown]
  - Rebound effect [Unknown]

NARRATIVE: CASE EVENT DATE: 20250101
